FAERS Safety Report 4786554-4 (Version None)
Quarter: 2005Q3

REPORT INFORMATION
  Report Type: 
  Country: None (occurrence: None)
  Receive Date: 20050927
  Receipt Date: 20050608
  Transmission Date: 20060218
  Serious: No
  Sender: FDA-Public Use
  Company Number: USA050699995

PATIENT
  Sex: Male

DRUGS (4)
  1. STRATTERA [Suspect]
     Dosage: 120 MG DAY
  2. WELLBUTRIN [Concomitant]
  3. TOPAMAX [Concomitant]
  4. PAXIL [Concomitant]

REACTIONS (1)
  - PRESCRIBED OVERDOSE [None]
